FAERS Safety Report 6784337-7 (Version None)
Quarter: 2010Q2

REPORT INFORMATION
  Report Type: 
  Country: None (occurrence: None)
  Receive Date: 20100622
  Receipt Date: 20100610
  Transmission Date: 20101027
  Serious: Yes (Death, Other)
  Sender: FDA-Public Use
  Company Number: US-SANOFI-AVENTIS-2010SA033809

PATIENT
  Sex: Male

DRUGS (1)
  1. AMBIEN [Suspect]
     Route: 048

REACTIONS (7)
  - ANXIETY [None]
  - ARRHYTHMIA [None]
  - DEATH [None]
  - DEPRESSION [None]
  - DRUG INTERACTION [None]
  - LOSS OF CONSCIOUSNESS [None]
  - RESPIRATORY DEPRESSION [None]
